FAERS Safety Report 4316575-7 (Version None)
Quarter: 2004Q1

REPORT INFORMATION
  Report Type: 
  Country: None (occurrence: None)
  Receive Date: 20040312
  Receipt Date: 20040312
  Transmission Date: 20041129
  Serious: Yes (Disabling, Other)
  Sender: FDA-Public Use
  Company Number: None

PATIENT
  Age: 34 Year
  Sex: Female
  Weight: 54.4316 kg

DRUGS (1)
  1. COLD-EEZE INTRANASAL ZINC 1.36% QUIGLEY CORP. [Suspect]
     Indication: NASOPHARYNGITIS
     Dosage: 2 APPLIC 1 SQUIRT NASAL
     Route: 045
     Dates: start: 20031213, end: 20031213

REACTIONS (5)
  - ANOSMIA [None]
  - LOSS OF EMPLOYMENT [None]
  - NASAL DISCOMFORT [None]
  - PAIN [None]
  - PHARMACEUTICAL PRODUCT COMPLAINT [None]
